FAERS Safety Report 11244050 (Version 1)
Quarter: 2015Q3

REPORT INFORMATION
  Report Type: Spontaneous
  Country: US (occurrence: None)
  Receive Date: 20150706
  Receipt Date: 20150706
  Transmission Date: 20151125
  Serious: No
  Sender: FDA-Public Use
  Company Number: None

PATIENT

DRUGS (2)
  1. TOPIRAMATE (TOPIRAMATE) [Suspect]
     Active Substance: TOPIRAMATE
     Route: 048
  2. LAMOTRIGINE (LAMOTRIGINE) [Suspect]
     Active Substance: LAMOTRIGINE
     Dosage: TABLET, ORAL, 25 MG, BOTTLE, 100 TABLETS
     Route: 048

REACTIONS (3)
  - Product packaging confusion [None]
  - Product selection error [None]
  - Product label issue [None]
